FAERS Safety Report 8524812-8 (Version None)
Quarter: 2012Q3

REPORT INFORMATION
  Report Type: 
  Country: None (occurrence: None)
  Receive Date: 20120720
  Receipt Date: 20120713
  Transmission Date: 20120928
  Serious: Yes (Other)
  Sender: FDA-Public Use
  Company Number: DK-GLAXOSMITHKLINE-B0766396A

PATIENT
  Sex: Female
  Weight: 81 kg

DRUGS (3)
  1. PAROXETINE HYDROCHLORIDE [Suspect]
     Indication: DEPRESSION
     Dosage: 10MG UNKNOWN
     Route: 048
  2. AKARIN [Concomitant]
     Dates: start: 20080215, end: 20100701
  3. PAROXETINE [Concomitant]

REACTIONS (7)
  - ABDOMINAL PAIN [None]
  - SUICIDAL IDEATION [None]
  - MYALGIA [None]
  - INFLUENZA [None]
  - MALAISE [None]
  - TEARFULNESS [None]
  - CRYING [None]
